FAERS Safety Report 5103904-X (Version None)
Quarter: 2006Q3

REPORT INFORMATION
  Report Type: 
  Country: None (occurrence: None)
  Receive Date: 20060913
  Receipt Date: 20060830
  Transmission Date: 20061208
  Serious: Yes (Death)
  Sender: FDA-Public Use
  Company Number: DE-BRISTOL-MYERS SQUIBB COMPANY-13502455

PATIENT
  Age: 62 Year
  Sex: Male

DRUGS (8)
  1. ERBITUX [Suspect]
     Indication: COLON CANCER STAGE 0
     Dates: start: 20060803, end: 20060803
  2. IRINOTECAN [Suspect]
     Indication: COLON CANCER STAGE 0
     Dates: start: 20060804, end: 20060804
  3. METOPROLOL [Concomitant]
     Indication: DRUG USE FOR UNKNOWN INDICATION
  4. PANTOPRAZOLE SODIUM [Concomitant]
     Indication: DRUG USE FOR UNKNOWN INDICATION
  5. ATROPINE SULFATE [Concomitant]
     Indication: DRUG USE FOR UNKNOWN INDICATION
     Route: 048
     Dates: start: 20060804, end: 20060804
  6. MARCUMAR [Concomitant]
     Indication: AORTIC VALVE REPLACEMENT
  7. DIMETINDENE [Concomitant]
     Indication: DRUG USE FOR UNKNOWN INDICATION
     Dates: start: 20060804, end: 20060804
  8. DEXAMETHASONE TAB [Concomitant]
     Indication: DRUG USE FOR UNKNOWN INDICATION
     Route: 048
     Dates: start: 20060804, end: 20060804

REACTIONS (7)
  - AXILLARY VEIN THROMBOSIS [None]
  - DEATH [None]
  - DEEP VEIN THROMBOSIS [None]
  - DISEASE PROGRESSION [None]
  - JUGULAR VEIN THROMBOSIS [None]
  - PERIPHERAL ARTERIAL OCCLUSIVE DISEASE [None]
  - SUBCLAVIAN VEIN THROMBOSIS [None]
